FAERS Safety Report 10606896 (Version 1)
Quarter: 2014Q4

REPORT INFORMATION
  Report Type: Spontaneous
  Country: US (occurrence: None)
  Receive Date: 20141124
  Receipt Date: 20141124
  Transmission Date: 20150529
  Serious: Yes (Hospitalization)
  Sender: FDA-Public Use
  Company Number: None

PATIENT
  Age: 67 Year
  Sex: Female
  Weight: 93.3 kg

DRUGS (10)
  1. NAMENDA [Suspect]
     Active Substance: MEMANTINE HYDROCHLORIDE
  2. ARICEPT [Suspect]
     Active Substance: DONEPEZIL HYDROCHLORIDE
     Indication: AGITATION
     Route: 048
  3. LORAZEPAM. [Suspect]
     Active Substance: LORAZEPAM
  4. ALEVE [Concomitant]
     Active Substance: NAPROXEN SODIUM
  5. ARICEPT [Suspect]
     Active Substance: DONEPEZIL HYDROCHLORIDE
     Indication: DEMENTIA
     Route: 048
  6. REMERON [Suspect]
     Active Substance: MIRTAZAPINE
  7. LOPERAMIDE [Concomitant]
     Active Substance: LOPERAMIDE
  8. CITALOPRAM [Suspect]
     Active Substance: CITALOPRAM HYDROBROMIDE
     Indication: DEMENTIA
     Route: 048
  9. TYLENOL [Concomitant]
     Active Substance: ACETAMINOPHEN
  10. CITALOPRAM [Suspect]
     Active Substance: CITALOPRAM HYDROBROMIDE
     Indication: AGITATION
     Route: 048

REACTIONS (2)
  - Mental status changes [None]
  - Delirium [None]

NARRATIVE: CASE EVENT DATE: 20140818
